FAERS Safety Report 20509245 (Version 4)
Quarter: 2022Q1

REPORT INFORMATION
  Report Type: Report from Study
  Country: CO (occurrence: CO)
  Receive Date: 20220223
  Receipt Date: 20220310
  Transmission Date: 20220423
  Serious: Yes (Hospitalization)
  Sender: FDA-Public Use
  Company Number: CO-JNJFOC-20220237838

PATIENT
  Age: 76 Year
  Sex: Female
  Weight: 58 kg

DRUGS (1)
  1. DARZALEX [Suspect]
     Active Substance: DARATUMUMAB
     Indication: Plasma cell myeloma
     Route: 042
     Dates: start: 20220211

REACTIONS (5)
  - Ocular hyperaemia [Recovering/Resolving]
  - Blood glucose increased [Recovering/Resolving]
  - Bronchospasm [Recovering/Resolving]
  - Infusion related reaction [Recovering/Resolving]
  - Cough [Recovering/Resolving]

NARRATIVE: CASE EVENT DATE: 20220211
